FAERS Safety Report 6206931-4 (Version None)
Quarter: 2009Q2

REPORT INFORMATION
  Report Type: 
  Country: None (occurrence: None)
  Receive Date: 20090528
  Receipt Date: 20090515
  Transmission Date: 20091009
  Serious: Yes (Death, Hospitalization)
  Sender: FDA-Public Use
  Company Number: A0786461A

PATIENT
  Age: 55 Year
  Sex: Male
  Weight: 127.3 kg

DRUGS (4)
  1. AVANDIA [Suspect]
     Dosage: 4MG THREE TIMES PER DAY
     Route: 048
     Dates: start: 19990101, end: 20060301
  2. METFORMIN HCL [Concomitant]
  3. CELEBREX [Concomitant]
  4. LIPITOR [Concomitant]

REACTIONS (2)
  - CORONARY ARTERY DISEASE [None]
  - DEATH [None]
